FAERS Safety Report 8344201-9 (Version None)
Quarter: 2012Q2

REPORT INFORMATION
  Report Type: 
  Country: None (occurrence: None)
  Receive Date: 20120508
  Receipt Date: 20120503
  Transmission Date: 20120825
  Serious: Yes (Other)
  Sender: FDA-Public Use
  Company Number: PHHY2011DE94233

PATIENT
  Sex: Female
  Weight: 67 kg

DRUGS (5)
  1. ZOLEDRONOC ACID [Suspect]
     Indication: OSTEOPOROSIS
     Dosage: 5 MG, YEARLY
     Route: 042
     Dates: start: 20110809
  2. PANTOPRAZOLE [Concomitant]
     Indication: DYSPEPSIA
     Dosage: UNK UKN, UNK
  3. DEKRISTOL [Concomitant]
     Indication: VITAMIN D DEFICIENCY
     Dosage: UNK UKN, UNK
  4. HOMEOPATHIC PREPARATION [Concomitant]
  5. VITAMIN B-12 [Concomitant]
     Indication: VITAMIN B12 DEFICIENCY
     Dosage: UNK UKN, UNK

REACTIONS (12)
  - JOINT SWELLING [None]
  - HYPOAESTHESIA [None]
  - FEELING ABNORMAL [None]
  - ARTHRALGIA [None]
  - DYSKINESIA [None]
  - AREFLEXIA [None]
  - ERYTHEMA [None]
  - VENOUS INSUFFICIENCY [None]
  - INFLUENZA LIKE ILLNESS [None]
  - GAIT DISTURBANCE [None]
  - MUSCULOSKELETAL STIFFNESS [None]
  - AMNESIA [None]
